FAERS Safety Report 4798651-8 (Version None)
Quarter: 2005Q4

REPORT INFORMATION
  Report Type: 
  Country: None (occurrence: None)
  Receive Date: 20051014
  Receipt Date: 20051004
  Transmission Date: 20060501
  Serious: Yes (Hospitalization)
  Sender: FDA-Public Use
  Company Number: DE-JNJFOC-20050906490

PATIENT
  Sex: Female
  Weight: 61 kg

DRUGS (20)
  1. BLINDED; TOPIRAMATE [Suspect]
     Route: 048
  2. BLINDED; TOPIRAMATE [Suspect]
     Route: 048
  3. BLINDED; TOPIRAMATE [Suspect]
     Route: 048
  4. BLINDED; TOPIRAMATE [Suspect]
     Route: 048
  5. BLINDED; TOPIRAMATE [Suspect]
     Indication: MIGRAINE PROPHYLAXIS
     Route: 048
  6. EUTHYROX [Concomitant]
     Indication: HYPOTHYROIDISM
     Route: 048
  7. EUNOVA [Concomitant]
     Route: 048
  8. EUNOVA [Concomitant]
     Route: 048
  9. EUNOVA [Concomitant]
     Route: 048
  10. EUNOVA [Concomitant]
     Route: 048
  11. EUNOVA [Concomitant]
     Route: 048
  12. EUNOVA [Concomitant]
     Route: 048
  13. EUNOVA [Concomitant]
     Route: 048
  14. EUNOVA [Concomitant]
     Route: 048
  15. EUNOVA [Concomitant]
     Route: 048
  16. EUNOVA [Concomitant]
     Route: 048
  17. EUNOVA [Concomitant]
     Route: 048
  18. EUNOVA [Concomitant]
     Route: 048
  19. EUNOVA [Concomitant]
     Route: 048
  20. EUNOVA [Concomitant]
     Dosage: 1 DOSE = 1 TABLET
     Route: 048

REACTIONS (6)
  - ARRHYTHMIA [None]
  - DYSPNOEA [None]
  - ELECTROCARDIOGRAM T WAVE INVERSION [None]
  - HYPOKALAEMIA [None]
  - VERTIGO [None]
  - VOMITING [None]
